FAERS Safety Report 11582663 (Version 1)
Quarter: 2015Q4

REPORT INFORMATION
  Report Type: Spontaneous
  Country: US (occurrence: US)
  Receive Date: 20151001
  Receipt Date: 20151001
  Transmission Date: 20160304
  Serious: Yes (Other)
  Sender: FDA-Public Use
  Company Number: US-ROCHE-656624

PATIENT
  Age: 49 Year
  Sex: Female
  Weight: 90.7 kg

DRUGS (9)
  1. PEGASYS [Suspect]
     Active Substance: PEGINTERFERON ALFA-2A
     Indication: HEPATITIS C
     Dosage: FORM: PRE-FILLED SYRINGE
     Route: 058
  2. PHENERGAN [Concomitant]
     Active Substance: PROMETHAZINE HYDROCHLORIDE
     Indication: NAUSEA
     Route: 065
  3. INSULIN [Concomitant]
     Active Substance: INSULIN NOS
     Route: 065
  4. PEGASYS [Suspect]
     Active Substance: PEGINTERFERON ALFA-2A
     Dosage: COMPLETED 24 WEEKS
     Route: 058
  5. RIBAVIRIN. [Suspect]
     Active Substance: RIBAVIRIN
     Indication: HEPATITIS C
     Dosage: DIVIDED DOSES
     Route: 048
  6. RIBAVIRIN. [Suspect]
     Active Substance: RIBAVIRIN
     Dosage: DOSE REDUCED
     Route: 048
  7. PEGASYS [Suspect]
     Active Substance: PEGINTERFERON ALFA-2A
     Dosage: DOSE REDUCED
     Route: 058
  8. PEGASYS [Suspect]
     Active Substance: PEGINTERFERON ALFA-2A
     Dosage: DOSAGE REDUCED.
     Route: 058
  9. RIBASPHERE [Suspect]
     Active Substance: RIBAVIRIN
     Indication: HEPATITIS C
     Dosage: DIVIDED DOSES; DRUG: RIBASPHERE 3 RIVERS
     Route: 065

REACTIONS (15)
  - Rash generalised [Not Recovered/Not Resolved]
  - Decreased appetite [Unknown]
  - Alanine aminotransferase increased [Unknown]
  - Oropharyngeal plaque [Unknown]
  - Skin fissures [Unknown]
  - Haemoglobin decreased [Unknown]
  - Eczema [Unknown]
  - Cardiac murmur [Unknown]
  - Blood glucose increased [Not Recovered/Not Resolved]
  - Injection site warmth [Recovered/Resolved]
  - White blood cell count decreased [Unknown]
  - Aspartate aminotransferase increased [Unknown]
  - Full blood count decreased [Unknown]
  - Hypoaesthesia [Unknown]
  - Chest pain [Unknown]

NARRATIVE: CASE EVENT DATE: 200908
